FAERS Safety Report 9678343 (Version 1)
Quarter: 2013Q4

REPORT INFORMATION
  Report Type: Spontaneous
  Country: US (occurrence: US)
  Receive Date: 20131108
  Receipt Date: 20131108
  Transmission Date: 20140711
  Serious: No
  Sender: FDA-Public Use
  Company Number: US-BAYER-2013-136289

PATIENT
  Sex: 0

DRUGS (5)
  1. ALEVE CAPLET [Suspect]
     Indication: PAIN
     Dosage: TABLET/CAPLET/GELCAP
  2. BAYER GENUINE ASPIRIN ORIGINAL STRENGTH [Suspect]
     Indication: PAIN
     Dosage: TABLET/CAPLET/GELCAP
  3. EXCEDRIN [ACETYLSALICYLIC ACID,CAFFEINE,PARACETAMOL,SALICYLAMIDE] [Suspect]
     Indication: PAIN
  4. ADVIL [Suspect]
     Indication: PAIN
  5. TYLENOL [PARACETAMOL] [Suspect]
     Indication: PAIN

REACTIONS (1)
  - Drug ineffective [None]
